FAERS Safety Report 22922509 (Version 3)
Quarter: 2025Q3

REPORT INFORMATION
  Report Type: Spontaneous
  Country: US (occurrence: US)
  Receive Date: 20230908
  Receipt Date: 20250905
  Transmission Date: 20251020
  Serious: No
  Sender: DOMPE FARMACEUTICI
  Company Number: US-FARMAPROD-202302-0546

PATIENT
  Age: 75 Year
  Sex: Female

DRUGS (39)
  1. OXERVATE [Suspect]
     Active Substance: CENEGERMIN-BKBJ
     Indication: Neurotrophic keratopathy
     Route: 047
     Dates: start: 20230216
  2. OXERVATE [Suspect]
     Active Substance: CENEGERMIN-BKBJ
  3. OXERVATE [Suspect]
     Active Substance: CENEGERMIN-BKBJ
     Dates: start: 20240603, end: 20240729
  4. OXERVATE [Suspect]
     Active Substance: CENEGERMIN-BKBJ
  5. OXERVATE [Suspect]
     Active Substance: CENEGERMIN-BKBJ
  6. XANAX [Concomitant]
     Active Substance: ALPRAZOLAM
  7. MONTELUKAST SODIUM [Concomitant]
     Active Substance: MONTELUKAST SODIUM
  8. VITAMIN D3 [Concomitant]
     Active Substance: CHOLECALCIFEROL
  9. MAGNESIUM [Concomitant]
     Active Substance: MAGNESIUM
  10. VITAMIN B12 [Concomitant]
     Active Substance: CYANOCOBALAMIN
  11. LYRICA [Concomitant]
     Active Substance: PREGABALIN
  12. FERROUS SULFATE [Concomitant]
     Active Substance: FERROUS SULFATE
  13. METFORMIN HYDROCHLORIDE [Concomitant]
     Active Substance: METFORMIN HYDROCHLORIDE
  14. ATORVASTATIN CALCIUM [Concomitant]
     Active Substance: ATORVASTATIN CALCIUM
  15. LOSARTAN POTASSIUM [Concomitant]
     Active Substance: LOSARTAN POTASSIUM
  16. ELIQUIS [Concomitant]
     Active Substance: APIXABAN
  17. METOPROLOL SUCCINATE [Concomitant]
     Active Substance: METOPROLOL SUCCINATE
  18. AMIODARONE HYDROCHLORIDE [Concomitant]
     Active Substance: AMIODARONE HYDROCHLORIDE
  19. LEXAPRO [Concomitant]
     Active Substance: ESCITALOPRAM OXALATE
  20. MECLIZINE HYDROCHLORIDE [Concomitant]
     Active Substance: MECLIZINE HYDROCHLORIDE
  21. FUROSEMIDE [Concomitant]
     Active Substance: FUROSEMIDE
  22. FLAREX [Concomitant]
     Active Substance: FLUOROMETHOLONE ACETATE
  23. MOXIFLOXACIN [Concomitant]
     Active Substance: MOXIFLOXACIN
  24. ADEMETIONINE [Concomitant]
     Active Substance: ADEMETIONINE
  25. LUMIFY [Concomitant]
     Active Substance: BRIMONIDINE TARTRATE
  26. METHOCARBAMOL [Concomitant]
     Active Substance: METHOCARBAMOL
  27. AMBIEN [Concomitant]
     Active Substance: ZOLPIDEM TARTRATE
  28. DICLOFENAC SODIUM [Concomitant]
     Active Substance: DICLOFENAC SODIUM
  29. LOTEPREDNOL ETABONATE [Concomitant]
     Active Substance: LOTEPREDNOL ETABONATE
  30. SYSTANE (HYPROMELLOSE 2910 (4000 MPA.S)) [Concomitant]
     Active Substance: HYPROMELLOSE 2910 (4000 MPA.S)
  31. IVIZIA [Concomitant]
     Active Substance: POVIDONE
  32. REFRESH OPTIVE [Concomitant]
     Active Substance: CARBOXYMETHYLCELLULOSE SODIUM\GLYCERIN
  33. BIOTIN [Concomitant]
     Active Substance: BIOTIN
  34. COLLAGEN [Concomitant]
     Active Substance: COLLAGEN
  35. VITAMINS [Concomitant]
     Active Substance: VITAMINS
  36. TRAMADOL HCL [Concomitant]
     Active Substance: TRAMADOL HYDROCHLORIDE
  37. PROGESTERONE [Concomitant]
     Active Substance: PROGESTERONE
  38. PRAVASTATIN SODIUM [Concomitant]
     Active Substance: PRAVASTATIN SODIUM
  39. ESTRADIOL [Concomitant]
     Active Substance: ESTRADIOL

REACTIONS (14)
  - Dry mouth [Unknown]
  - Eye contusion [Unknown]
  - Fall [Unknown]
  - Eye swelling [Not Recovered/Not Resolved]
  - Somnolence [Not Recovered/Not Resolved]
  - Eye pain [Not Recovered/Not Resolved]
  - Photophobia [Not Recovered/Not Resolved]
  - Eye discharge [Recovering/Resolving]
  - Erythema of eyelid [Unknown]
  - Eyelid irritation [Unknown]
  - Eyelid pain [Not Recovered/Not Resolved]
  - Periorbital pain [Unknown]
  - Dry eye [Unknown]
  - Lacrimation increased [Unknown]

NARRATIVE: CASE EVENT DATE: 20230308
